FAERS Safety Report 7323064-4 (Version None)
Quarter: 2011Q1

REPORT INFORMATION
  Report Type: 
  Country: None (occurrence: None)
  Receive Date: 20110301
  Receipt Date: 20110202
  Transmission Date: 20110831
  Serious: No
  Sender: FDA-Public Use
  Company Number: US-B.I. PHARMACEUTICALS,INC./RIDGEFIELD-2010-BP-14531PF

PATIENT
  Sex: Female
  Weight: 58.96 kg

DRUGS (10)
  1. ASA [Concomitant]
     Dosage: 325 MG
     Route: 048
  2. PROAIR HFA [Concomitant]
     Dosage: 8 PUF
     Dates: start: 20090101
  3. CHANTIX [Suspect]
     Indication: SMOKING CESSATION THERAPY
  4. VYTORIN [Concomitant]
     Indication: BLOOD CHOLESTEROL ABNORMAL
     Route: 048
     Dates: start: 20070424
  5. SPIRIVA [Suspect]
     Indication: CHRONIC OBSTRUCTIVE PULMONARY DISEASE
     Dosage: 18 MCG
     Dates: start: 20041006
  6. SPIRIVA [Suspect]
     Indication: EMPHYSEMA
  7. ADVAIR DISKUS 100/50 [Suspect]
     Indication: CHRONIC OBSTRUCTIVE PULMONARY DISEASE
     Dates: start: 20030916
  8. TYLENOL PM [Concomitant]
  9. CHANTIX [Suspect]
     Dosage: 0.5 MG
     Dates: start: 20101210
  10. LISINOPRIL [Concomitant]
     Indication: BLOOD PRESSURE ABNORMAL
     Dosage: 20 MG
     Dates: start: 20040528

REACTIONS (6)
  - BRONCHITIS [None]
  - SKIN DISORDER [None]
  - NAIL DISORDER [None]
  - PRURITUS [None]
  - MOUTH ULCERATION [None]
  - INFECTION [None]
